FAERS Safety Report 8931163 (Version 1)
Quarter: 2012Q4

REPORT INFORMATION
  Report Type: 
  Country: US (occurrence: US)
  Receive Date: 20121128
  Receipt Date: 20121128
  Transmission Date: 20130627
  Serious: Yes (Hospitalization)
  Sender: FDA-Public Use
  Company Number: US-009507513-1103USA00977

PATIENT
  Age: 54 Year
  Sex: Female

DRUGS (16)
  1. VORINOSTAT [Suspect]
     Indication: MALIGNANT GLIOMA
     Dosage: 400 mg, Cyclical
     Route: 048
     Dates: start: 20101203
  2. VORINOSTAT [Suspect]
     Dosage: 400 mg, Cyclical
     Route: 048
     Dates: start: 20110113, end: 20110115
  3. VORINOSTAT [Suspect]
     Dosage: 400 mg, Cyclical
     Route: 048
     Dates: start: 20110127
  4. TEMODAR [Suspect]
     Indication: MALIGNANT GLIOMA
     Dosage: 110 mg, qd
     Route: 048
     Dates: start: 20101203
  5. TEMODAR [Suspect]
     Dosage: 110 mg, qd
     Route: 048
     Dates: start: 20110113, end: 20110115
  6. TEMODAR [Suspect]
     Dosage: 110 mg, qd
     Route: 048
     Dates: start: 20110120
  7. BEVACIZUMAB [Suspect]
     Indication: MALIGNANT GLIOMA
     Dosage: 1432 mg, QOW
     Route: 042
     Dates: start: 20101203
  8. BEVACIZUMAB [Suspect]
     Dosage: 1432 mg, QOW
     Route: 042
     Dates: start: 20110113
  9. DECADRON TABLETS [Concomitant]
     Dosage: 2 mg, bid
     Route: 048
  10. LOVENOX [Concomitant]
     Dosage: 150 mg, qd
     Route: 058
  11. PEPCID [Concomitant]
     Dosage: 40 mg, QPM
     Route: 048
  12. ZOFRAN [Concomitant]
     Dosage: PRN
  13. SIMVASTATIN [Concomitant]
     Dosage: 20 mg, qd
     Route: 048
  14. PERCOCET [Concomitant]
     Dosage: PRN
     Route: 048
  15. KEPPRA [Concomitant]
     Dosage: 500 mg, bid
  16. NORVASC [Suspect]
     Dosage: 5 mg, qd

REACTIONS (5)
  - Convulsion [Recovered/Resolved]
  - Fracture [Unknown]
  - Muscular weakness [Unknown]
  - Thrombosis [Unknown]
  - Infection [Unknown]
